FAERS Safety Report 25652406 (Version 2)
Quarter: 2025Q3

REPORT INFORMATION
  Report Type: Spontaneous
  Country: US (occurrence: US)
  Receive Date: 20250807
  Receipt Date: 20250811
  Transmission Date: 20251021
  Serious: Yes (Other)
  Sender: ROCHE
  Company Number: US-ROCHE-10000354351

PATIENT
  Sex: Female
  Weight: 62.14 kg

DRUGS (1)
  1. XOLAIR [Suspect]
     Active Substance: OMALIZUMAB
     Indication: Urticaria
     Dosage: DOSE: 150/75 MG?150 MG TWICE AND 75 MG ONCE
     Route: 058
     Dates: start: 202503, end: 202503

REACTIONS (9)
  - Arthralgia [Not Recovered/Not Resolved]
  - Off label use [Unknown]
  - Chest discomfort [Not Recovered/Not Resolved]
  - Dry eye [Not Recovered/Not Resolved]
  - Anxiety [Unknown]
  - Agitation [Unknown]
  - Nervousness [Unknown]
  - Neoplasm malignant [Unknown]
  - Dysphonia [Not Recovered/Not Resolved]
